FAERS Safety Report 15879278 (Version 1)
Quarter: 2019Q1

REPORT INFORMATION
  Report Type: Spontaneous
  Country: US (occurrence: US)
  Receive Date: 20190128
  Receipt Date: 20190128
  Transmission Date: 20190417
  Serious: Yes (Other)
  Sender: FDA-Public Use
  Company Number: US-NOVOPROD-642618

PATIENT
  Age: 58 Year
  Sex: Female

DRUGS (1)
  1. NOVOLOG [Suspect]
     Active Substance: INSULIN ASPART
     Indication: TYPE 1 DIABETES MELLITUS
     Dosage: 6 UNITS PLUS SLIDING SCALE
     Route: 058
     Dates: start: 2014

REACTIONS (5)
  - Product quality issue [Not Recovered/Not Resolved]
  - Cataract operation [Recovered/Resolved]
  - Blood glucose increased [Not Recovered/Not Resolved]
  - Cataract operation [Recovered/Resolved]
  - Drug ineffective [Not Recovered/Not Resolved]

NARRATIVE: CASE EVENT DATE: 20181217
